FAERS Safety Report 20473562 (Version 1)
Quarter: 2022Q1

REPORT INFORMATION
  Report Type: Spontaneous
  Country: US (occurrence: US)
  Receive Date: 20220215
  Receipt Date: 20220215
  Transmission Date: 20220424
  Serious: No
  Sender: FDA-Public Use
  Company Number: US-ALLERGAN-2108632US

PATIENT

DRUGS (2)
  1. TAZAROTENE [Suspect]
     Active Substance: TAZAROTENE
     Indication: Acne
     Dosage: 0.1 %
     Route: 061
     Dates: start: 202101
  2. TAZAROTENE [Suspect]
     Active Substance: TAZAROTENE
     Indication: Skin hyperpigmentation

REACTIONS (1)
  - Condition aggravated [Unknown]
